FAERS Safety Report 13451442 (Version 1)
Quarter: 2017Q2

REPORT INFORMATION
  Report Type: Spontaneous
  Country: US (occurrence: US)
  Receive Date: 20170418
  Receipt Date: 20170418
  Transmission Date: 20170830
  Serious: No
  Sender: FDA-Public Use
  Company Number: US-LUPIN PHARMACEUTICALS INC.-2016-04553

PATIENT
  Sex: Female
  Weight: 104.33 kg

DRUGS (2)
  1. MY WAY [Suspect]
     Active Substance: LEVONORGESTREL
     Indication: CONTRACEPTION
     Dosage: UNK UNK,UNK,UNKNOWN
     Route: 048
     Dates: start: 20160823
  2. ALEVE [Concomitant]
     Active Substance: NAPROXEN SODIUM
     Indication: PRODUCT USED FOR UNKNOWN INDICATION
     Dosage: UNK UNK,PRN,
     Route: 065

REACTIONS (2)
  - Metrorrhagia [Recovered/Resolved]
  - Menstruation delayed [Not Recovered/Not Resolved]
